FAERS Safety Report 9036333 (Version 1)
Quarter: 2013Q1

REPORT INFORMATION
  Report Type: Spontaneous
  Country: US (occurrence: None)
  Receive Date: 20130117
  Receipt Date: 20130117
  Transmission Date: 20140127
  Serious: Yes (Other)
  Sender: FDA-Public Use
  Company Number: None

PATIENT
  Age: 48 Year
  Sex: Male
  Weight: 81.65 kg

DRUGS (1)
  1. PRISTIQ [Suspect]
     Dates: start: 20121201, end: 20121229

REACTIONS (3)
  - Drug withdrawal syndrome [None]
  - Product formulation issue [None]
  - Product quality issue [None]
